FAERS Safety Report 15356251 (Version 2)
Quarter: 2019Q1

REPORT INFORMATION
  Report Type: Spontaneous
  Country: US (occurrence: US)
  Receive Date: 20180906
  Receipt Date: 20190111
  Transmission Date: 20190417
  Serious: No
  Sender: FDA-Public Use
  Company Number: US-INTERCEPT-PMOCA2018000873

PATIENT

DRUGS (1)
  1. OCALIVA [Suspect]
     Active Substance: OBETICHOLIC ACID
     Indication: PRIMARY BILIARY CHOLANGITIS
     Dosage: 5 MG, QD
     Route: 048
     Dates: start: 20180314

REACTIONS (8)
  - Feeling hot [Recovered/Resolved]
  - Mood altered [Unknown]
  - Dizziness [Unknown]
  - Irritable bowel syndrome [Recovered/Resolved]
  - Fatigue [Unknown]
  - Eye pruritus [Recovered/Resolved]
  - Pruritus generalised [Recovered/Resolved]
  - Rash [Unknown]

NARRATIVE: CASE EVENT DATE: 20180601
